FAERS Safety Report 6845750-2 (Version None)
Quarter: 2010Q3

REPORT INFORMATION
  Report Type: 
  Country: None (occurrence: None)
  Receive Date: 20100715
  Receipt Date: 20070827
  Transmission Date: 20110219
  Serious: No
  Sender: FDA-Public Use
  Company Number: US-PFIZER INC-2007072931

PATIENT
  Sex: Female
  Weight: 85.7 kg

DRUGS (7)
  1. CHANTIX [Suspect]
     Indication: SMOKING CESSATION THERAPY
     Dates: start: 20070818
  2. WELLBUTRIN [Concomitant]
  3. ANAFRANIL [Concomitant]
  4. PAXIL [Concomitant]
  5. GEODON [Concomitant]
  6. LIPITOR [Concomitant]
  7. KLONOPIN [Concomitant]

REACTIONS (1)
  - ABDOMINAL PAIN UPPER [None]
